FAERS Safety Report 12290303 (Version 2)
Quarter: 2016Q2

REPORT INFORMATION
  Report Type: Spontaneous
  Country: CH (occurrence: CH)
  Receive Date: 20160421
  Receipt Date: 20160526
  Transmission Date: 20160815
  Serious: Yes (Death)
  Sender: FDA-Public Use
  Company Number: CH-NOVOPROD-488052

PATIENT
  Age: 81 Year
  Sex: Male

DRUGS (7)
  1. LUCRIN DEPO [Suspect]
     Active Substance: LEUPROLIDE ACETATE
     Indication: PROSTATE CANCER METASTATIC
     Dosage: 11.20 MG, 1 DF DOSAGE FORM. 1 PER 3 MONTH(S)
     Route: 058
     Dates: start: 20150309
  2. ASPIRIN CARDIO [Concomitant]
     Active Substance: ASPIRIN
     Dosage: 100 MG, QD
     Route: 048
  3. COVERSUM N COMBI [Concomitant]
     Dosage: 1 DF, QD (2.5/0.625 MG/DAY)
     Route: 048
  4. TAXOTERE [Suspect]
     Active Substance: DOCETAXEL
     Indication: PROSTATE CANCER METASTATIC
     Dosage: 1 PER 1 WEEK(S). DOSAGE UNKNOWN.
     Route: 041
     Dates: start: 20151013
  5. PREDNISON STREULI [Concomitant]
     Dosage: 5 MG, QD
     Route: 048
  6. TRESIBA [Suspect]
     Active Substance: INSULIN DEGLUDEC
     Indication: PRODUCT USED FOR UNKNOWN INDICATION
     Dosage: 10 IU, QD
     Route: 058
     Dates: start: 2015
  7. XGEVA [Suspect]
     Active Substance: DENOSUMAB
     Indication: PROSTATE CANCER METASTATIC
     Dosage: 120 MG, 1 PER 1 MONTH(S).
     Route: 058
     Dates: start: 2015

REACTIONS (1)
  - Hepatitis fulminant [Fatal]

NARRATIVE: CASE EVENT DATE: 20160317
